FAERS Safety Report 8826400 (Version 1)
Quarter: 2012Q4

REPORT INFORMATION
  Report Type: 
  Country: US (occurrence: US)
  Receive Date: 20121005
  Receipt Date: 20121005
  Transmission Date: 20130627
  Serious: No
  Sender: FDA-Public Use
  Company Number: US-B.I. PHARMACEUTICALS,INC./RIDGEFIELD-2012-BP-24397BP

PATIENT
  Sex: Female
  Weight: 68 kg

DRUGS (3)
  1. COMBIVENT [Suspect]
     Indication: LUNG DISORDER
     Route: 055
  2. MOBIC [Suspect]
     Indication: OSTEOARTHRITIS
     Dosage: 15 mg
     Route: 048
     Dates: start: 2010
  3. OXYCODONE [Concomitant]
     Indication: PAIN
     Route: 048

REACTIONS (4)
  - Musculoskeletal chest pain [Not Recovered/Not Resolved]
  - Decreased appetite [Not Recovered/Not Resolved]
  - Abnormal loss of weight [Not Recovered/Not Resolved]
  - Painful respiration [Not Recovered/Not Resolved]
